FAERS Safety Report 10577109 (Version 1)
Quarter: 2014Q4

REPORT INFORMATION
  Report Type: Spontaneous
  Country: US (occurrence: US)
  Receive Date: 20141111
  Receipt Date: 20141111
  Transmission Date: 20150529
  Serious: Yes (Hospitalization, Other)
  Sender: FDA-Public Use
  Company Number: US-GLAXOSMITHKLINE-US2014GSK019393

PATIENT

DRUGS (2)
  1. AVANDAMET [Suspect]
     Active Substance: METFORMIN HYDROCHLORIDE\ROSIGLITAZONE MALEATE
     Indication: DIABETES MELLITUS
     Dosage: UNK
     Route: 048
     Dates: start: 20050513, end: 20051118
  2. AVANDIA [Suspect]
     Active Substance: ROSIGLITAZONE MALEATE
     Indication: DIABETES MELLITUS
     Dosage: UNK
     Route: 048
     Dates: start: 20051212, end: 20070629

REACTIONS (7)
  - Myocardial infarction [Unknown]
  - Cardiac failure congestive [Unknown]
  - Ischaemic cardiomyopathy [Unknown]
  - Coronary artery disease [Unknown]
  - Congestive cardiomyopathy [Unknown]
  - Angina unstable [Unknown]
  - Pleural effusion [Unknown]
